FAERS Safety Report 4479406-0 (Version None)
Quarter: 2004Q4

REPORT INFORMATION
  Report Type: 
  Country: None (occurrence: None)
  Receive Date: 20041015
  Receipt Date: 20041006
  Transmission Date: 20050328
  Serious: Yes (Other)
  Sender: FDA-Public Use
  Company Number: K200401507

PATIENT
  Age: 69 Year
  Sex: Female

DRUGS (2)
  1. ALTACE [Suspect]
     Dosage: 10 MG, QD AM,ORAL
     Route: 048
  2. BISOPROLOL FUMARATE [Concomitant]

REACTIONS (2)
  - HEART RATE DECREASED [None]
  - LOSS OF CONSCIOUSNESS [None]
